FAERS Safety Report 11455352 (Version 1)
Quarter: 2015Q3

REPORT INFORMATION
  Report Type: Spontaneous
  Country: US (occurrence: US)
  Receive Date: 20150903
  Receipt Date: 20150903
  Transmission Date: 20151125
  Serious: No
  Sender: FDA-Public Use
  Company Number: US-BAYER-2015-413549

PATIENT
  Age: 64 Year
  Sex: Female
  Weight: 90.7 kg

DRUGS (4)
  1. CALCIUM W/VITAMINS NOS [Concomitant]
  2. MOTRIN [Concomitant]
     Active Substance: IBUPROFEN
  3. OXYTROL FOR WOMEN [Suspect]
     Active Substance: OXYBUTYNIN
     Indication: URINARY INCONTINENCE
     Dosage: 1 DF, PRN
     Route: 061
     Dates: start: 2010
  4. LOSARTAN. [Concomitant]
     Active Substance: LOSARTAN

REACTIONS (2)
  - Abdominal pain [Not Recovered/Not Resolved]
  - Rash erythematous [Not Recovered/Not Resolved]

NARRATIVE: CASE EVENT DATE: 20150830
